FAERS Safety Report 18825858 (Version 1)
Quarter: 2021Q1

REPORT INFORMATION
  Report Type: Spontaneous
  Country: US (occurrence: US)
  Receive Date: 20210202
  Receipt Date: 20210202
  Transmission Date: 20210419
  Serious: Yes (Other)
  Sender: FDA-Public Use
  Company Number: US-BRISTOL-MYERS SQUIBB COMPANY-BMS-2021-009685

PATIENT
  Age: 45 Year
  Sex: Female

DRUGS (6)
  1. ALEMTUZUMAB [Concomitant]
     Active Substance: ALEMTUZUMAB
     Indication: LUNG TRANSPLANT
     Dosage: UNK
     Route: 065
  2. EVEROLIMUS. [Concomitant]
     Active Substance: EVEROLIMUS
     Indication: LUNG TRANSPLANT
     Route: 065
  3. BELATACEPT [Suspect]
     Active Substance: BELATACEPT
     Indication: LUNG TRANSPLANT
     Dosage: TRANSITIONAL DOSE
     Route: 065
  4. PREDNISONE. [Suspect]
     Active Substance: PREDNISONE
     Indication: LUNG TRANSPLANT
     Dosage: UNK
     Route: 065
  5. IMMUNOGLOBULINS [Concomitant]
     Indication: THROMBOTIC THROMBOCYTOPENIC PURPURA
     Route: 065
  6. TACROLIMUS. [Concomitant]
     Active Substance: TACROLIMUS
     Indication: LUNG TRANSPLANT
     Route: 065

REACTIONS (2)
  - Pneumonia pseudomonal [Unknown]
  - Intentional product use issue [Unknown]
